FAERS Safety Report 22366653 (Version 1)
Quarter: 2023Q2

REPORT INFORMATION
  Report Type: Spontaneous
  Country: US (occurrence: None)
  Receive Date: 20230524
  Receipt Date: 20230524
  Transmission Date: 20230721
  Serious: No
  Sender: FDA-Public Use
  Company Number: None

PATIENT
  Age: 31 Year
  Sex: Male
  Weight: 112.5 kg

DRUGS (7)
  1. MOUNJARO [Suspect]
     Active Substance: TIRZEPATIDE
     Indication: Type 2 diabetes mellitus
     Dosage: OTHER FREQUENCY : ONCE A WEEK;?OTHER ROUTE : SUBCUTANEOUS INJECTION;?
     Route: 050
     Dates: start: 20221201
  2. LYBALVI [Concomitant]
     Active Substance: OLANZAPINE\SAMIDORPHAN L-MALATE
  3. METFORMIN [Concomitant]
     Active Substance: METFORMIN HYDROCHLORIDE
  4. MIRTAZAPINE [Concomitant]
     Active Substance: MIRTAZAPINE
  5. ROSUVASTATIN [Concomitant]
     Active Substance: ROSUVASTATIN
  6. OMEGA 3 [Concomitant]
     Active Substance: CAPSAICIN
  7. SACCHAROMYCES CEREVISIAE [Concomitant]
     Active Substance: SACCHAROMYCES CEREVISIAE

REACTIONS (2)
  - Allodynia [None]
  - Pain of skin [None]

NARRATIVE: CASE EVENT DATE: 20221201
